FAERS Safety Report 8485748-4 (Version None)
Quarter: 2012Q3

REPORT INFORMATION
  Report Type: 
  Country: None (occurrence: None)
  Receive Date: 20120703
  Receipt Date: 20120620
  Transmission Date: 20120928
  Serious: Yes (Death, Other)
  Sender: FDA-Public Use
  Company Number: GB-ROCHE-1082503

PATIENT

DRUGS (5)
  1. ACTEMRA [Suspect]
     Indication: RHEUMATOID ARTHRITIS
  2. ACTEMRA [Suspect]
     Indication: SPONDYLOARTHROPATHY
  3. ACTEMRA [Suspect]
     Indication: ARTHRITIS
  4. ACTEMRA [Suspect]
     Indication: JUVENILE ARTHRITIS
  5. ACTEMRA [Suspect]
     Indication: STILL'S DISEASE ADULT ONSET

REACTIONS (8)
  - SEPSIS [None]
  - NO THERAPEUTIC RESPONSE [None]
  - HYPOGAMMAGLOBULINAEMIA [None]
  - NAUSEA [None]
  - PNEUMONIA [None]
  - NEUTROPENIA [None]
  - INFUSION RELATED REACTION [None]
  - ARTHRITIS BACTERIAL [None]
